FAERS Safety Report 7636741-2 (Version None)
Quarter: 2011Q3

REPORT INFORMATION
  Report Type: 
  Country: None (occurrence: None)
  Receive Date: 20110726
  Receipt Date: 20110718
  Transmission Date: 20111222
  Serious: Yes (Other)
  Sender: FDA-Public Use
  Company Number: US-ASTRAZENECA-2010SE11415

PATIENT
  Age: 381 Month
  Sex: Female
  Weight: 119.3 kg

DRUGS (13)
  1. ALBUTEROL SULFATE AUTOHALER [Concomitant]
  2. SEROQUEL [Suspect]
     Indication: DEPRESSION
     Route: 048
     Dates: start: 20040201, end: 20060401
  3. TOPAMAX [Concomitant]
     Dates: start: 20040101
  4. COZAAR [Concomitant]
  5. SEROQUEL [Suspect]
     Indication: SLEEP DISORDER
     Route: 048
     Dates: start: 20040201, end: 20060401
  6. SEROQUEL [Suspect]
     Route: 048
     Dates: start: 20041206
  7. LEXAPRO [Concomitant]
     Dates: start: 20040101
  8. SEROQUEL [Suspect]
     Route: 048
     Dates: start: 20041206
  9. ASPIRIN [Concomitant]
  10. LISINOPRIL [Concomitant]
  11. PROZAC [Concomitant]
     Dates: start: 20040101
  12. ADVAIR DISKUS 100/50 [Concomitant]
     Route: 048
  13. LOPID [Concomitant]

REACTIONS (13)
  - NEUROPATHY PERIPHERAL [None]
  - DIABETIC NEPHROPATHY [None]
  - NEPHROPATHY [None]
  - HYPOGLYCAEMIA [None]
  - TYPE 2 DIABETES MELLITUS [None]
  - VISION BLURRED [None]
  - DIABETES MELLITUS INADEQUATE CONTROL [None]
  - GASTROINTESTINAL DISORDER [None]
  - TYPE 1 DIABETES MELLITUS [None]
  - RENAL FAILURE CHRONIC [None]
  - PROTEINURIA [None]
  - IGA NEPHROPATHY [None]
  - HAEMATURIA [None]
